FAERS Safety Report 8090355-1 (Version None)
Quarter: 2012Q1

REPORT INFORMATION
  Report Type: 
  Country: None (occurrence: None)
  Receive Date: 20120129
  Receipt Date: 20111128
  Transmission Date: 20120608
  Serious: Yes (Hospitalization, Other)
  Sender: FDA-Public Use
  Company Number: US-ABBOTT-11P-163-0879583-00

PATIENT
  Sex: Female
  Weight: 86.26 kg

DRUGS (6)
  1. LORTAB [Concomitant]
     Indication: PAIN
     Dosage: 7.5/500MG EVERY 4-6 HOURS, AS NEEDED
  2. PROMETHAZINE [Concomitant]
     Indication: NAUSEA
     Dosage: EVERY 4-6 HOURS AS NEEDED
  3. HUMIRA [Suspect]
     Route: 058
     Dates: start: 20110801
  4. CIMZIA [Suspect]
     Indication: CROHN'S DISEASE
     Dates: start: 20100601, end: 20110601
  5. PROTONIX [Concomitant]
     Indication: GASTROOESOPHAGEAL REFLUX DISEASE
     Dosage: 40MG DAILY
  6. HUMIRA [Suspect]
     Indication: CROHN'S DISEASE
     Route: 058
     Dates: start: 20090601, end: 20100601

REACTIONS (6)
  - BLOOD GLUCOSE INCREASED [None]
  - DIABETES MELLITUS [None]
  - PERIRECTAL ABSCESS [None]
  - CHRONIC SINUSITIS [None]
  - ANORECTAL INFECTION [None]
  - CROHN'S DISEASE [None]
